FAERS Safety Report 10420322 (Version 3)
Quarter: 2015Q1

REPORT INFORMATION
  Report Type: Spontaneous
  Country: US (occurrence: None)
  Receive Date: 20140701
  Receipt Date: 20150326
  Transmission Date: 20150720
  Serious: No
  Sender: FDA-Public Use
  Company Number: 1000066286

PATIENT
  Age: 70 Year
  Sex: Male

DRUGS (12)
  1. MAGNESIUM CITRATE. [Concomitant]
     Active Substance: MAGNESIUM CITRATE
  2. ALIGN (BIFIDOBACTERIUM INFANTIS) [Concomitant]
  3. LIBRAX (CHLORDIAZEPOXIDE, CLIDINIUM) [Concomitant]
  4. FLOMAX (TAMSULOSIN) [Concomitant]
  5. LOTREL (COROVAL B) [Concomitant]
  6. GLIPIZIDE. [Concomitant]
     Active Substance: GLIPIZIDE
  7. SIMETHICONE (SIMETICONE) [Concomitant]
  8. HYDROCODONE [Concomitant]
     Active Substance: HYDROCODONE
  9. LINZESS [Suspect]
     Active Substance: LINACLOTIDE
     Indication: IRRITABLE BOWEL SYNDROME
     Route: 048
     Dates: start: 20130620, end: 20140212
  10. NEXIUM [Concomitant]
     Active Substance: ESOMEPRAZOLE MAGNESIUM
  11. BEANO (ALPHA-D-GALACTOSIDASE) [Concomitant]
  12. LORAZEPAM. [Concomitant]
     Active Substance: LORAZEPAM

REACTIONS (6)
  - Diarrhoea [None]
  - Intentional product misuse [None]
  - Abdominal pain [None]
  - Flatulence [None]
  - Abdominal distension [None]
  - Drug ineffective [None]

NARRATIVE: CASE EVENT DATE: 20130620
